FAERS Safety Report 8020606-0 (Version None)
Quarter: 2012Q1

REPORT INFORMATION
  Report Type: 
  Country: None (occurrence: None)
  Receive Date: 20120103
  Receipt Date: 20111229
  Transmission Date: 20120608
  Serious: Yes (Death)
  Sender: FDA-Public Use
  Company Number: CL-ASTRAZENECA-2011SE79016

PATIENT
  Age: 82 Year
  Sex: Male

DRUGS (4)
  1. LOSARTAN POTASSIUM [Concomitant]
  2. FELODIPINE [Suspect]
     Route: 048
  3. METFORMIN HCL [Concomitant]
  4. NIFEDIPINE [Concomitant]

REACTIONS (1)
  - MULTI-ORGAN FAILURE [None]
